FAERS Safety Report 24176585 (Version 1)
Quarter: 2024Q3

REPORT INFORMATION
  Report Type: Spontaneous
  Country: ZA (occurrence: None)
  Receive Date: 20240806
  Receipt Date: 20240806
  Transmission Date: 20241016
  Serious: Yes (Hospitalization)
  Sender: ASTRAZENECA
  Company Number: 2024A172256

PATIENT
  Age: 60 Year
  Sex: Male

DRUGS (10)
  1. DAPAGLIFLOZIN PROPANEDIOL [Suspect]
     Active Substance: DAPAGLIFLOZIN PROPANEDIOL
     Indication: Diabetes mellitus
     Dosage: 10.0MG UNKNOWN
     Route: 048
  2. FLUTICASONE PROPIONATE [Concomitant]
     Active Substance: FLUTICASONE PROPIONATE
     Indication: Hypersensitivity
     Dosage: 120 DOSE 50 MCG50.0MG UNKNOWN
     Route: 045
  3. BISOPROLOL FUMARATE [Concomitant]
     Active Substance: BISOPROLOL FUMARATE
     Indication: Hypertension
     Dosage: 5.0MG UNKNOWN
     Route: 048
  4. LIPOGEN [Concomitant]
     Indication: Blood cholesterol
     Dosage: 80.0MG UNKNOWN
     Route: 048
  5. METFORMIN HYDROCHLORIDE [Concomitant]
     Active Substance: METFORMIN HYDROCHLORIDE
     Indication: Diabetes mellitus
     Dosage: 1000.0MG UNKNOWN
     Route: 048
  6. MEDROL [Concomitant]
     Active Substance: METHYLPREDNISOLONE
     Dosage: 4.0MG UNKNOWN
     Route: 048
  7. SYNALEVE [Concomitant]
     Indication: Pain
     Dosage: UNKNOWN
     Route: 048
  8. BUDESONIDE [Concomitant]
     Active Substance: BUDESONIDE
     Indication: Rhinitis allergic
     Dosage: 0.5MG UNKNOWN
     Route: 045
  9. DIAZEPAM [Concomitant]
     Active Substance: DIAZEPAM
     Indication: Anxiety
     Dosage: 5.0MG UNKNOWN
     Route: 048
  10. ALLERGEX [Concomitant]
     Indication: Hypersensitivity
     Dosage: 4.0MG UNKNOWN
     Route: 048

REACTIONS (2)
  - Illness [Unknown]
  - Gallbladder disorder [Unknown]
